FAERS Safety Report 25706950 (Version 1)
Quarter: 2025Q3

REPORT INFORMATION
  Report Type: Spontaneous
  Country: EU (occurrence: EU)
  Receive Date: 20250820
  Receipt Date: 20250820
  Transmission Date: 20251021
  Serious: Yes (Life-Threatening, Hospitalization, Other)
  Sender: ACCORD
  Company Number: EU-Accord-500019

PATIENT
  Age: 29 Year
  Sex: Male

DRUGS (2)
  1. METHOTREXATE [Suspect]
     Active Substance: METHOTREXATE
     Indication: Still^s disease
     Dosage: 20 MG ONCE WEEKLY
  2. TOCILIZUMAB [Suspect]
     Active Substance: TOCILIZUMAB
     Indication: Product used for unknown indication
     Dates: start: 2022

REACTIONS (6)
  - Varicella zoster virus infection [Recovered/Resolved]
  - Varicella zoster pneumonia [Recovered/Resolved]
  - Pneumothorax [Recovered/Resolved]
  - Respiratory failure [Recovered/Resolved]
  - Lung abscess [Recovering/Resolving]
  - Off label use [Unknown]

NARRATIVE: CASE EVENT DATE: 20220601
